FAERS Safety Report 12153817 (Version 5)
Quarter: 2016Q2

REPORT INFORMATION
  Report Type: Report from Study
  Country: JP (occurrence: JP)
  Receive Date: 20160307
  Receipt Date: 20160623
  Transmission Date: 20160815
  Serious: Yes (Life-Threatening, Disabling, Other)
  Sender: FDA-Public Use
  Company Number: JP-ROCHE-1720602

PATIENT
  Age: 67 Year
  Sex: Female
  Weight: 46 kg

DRUGS (14)
  1. PERJETA [Suspect]
     Active Substance: PERTUZUMAB
     Dosage: 420MG/14ML
     Route: 041
     Dates: start: 20151111, end: 20151111
  2. LASIX [Concomitant]
     Active Substance: FUROSEMIDE
     Indication: PROPHYLAXIS
     Route: 048
     Dates: start: 20151202, end: 20160212
  3. EDIROL [Concomitant]
     Active Substance: ELDECALCITOL
     Indication: OSTEOPOROSIS
     Route: 048
     Dates: end: 20160212
  4. PERJETA [Suspect]
     Active Substance: PERTUZUMAB
     Indication: BREAST CANCER
     Dosage: 420MG/14ML
     Route: 041
     Dates: start: 20150909, end: 20150909
  5. PERJETA [Suspect]
     Active Substance: PERTUZUMAB
     Dosage: 420MG/14ML
     Route: 041
     Dates: start: 20150930, end: 20150930
  6. PERJETA [Suspect]
     Active Substance: PERTUZUMAB
     Dosage: 420MG/14ML
     Route: 041
     Dates: start: 20151221, end: 20151221
  7. PERJETA [Suspect]
     Active Substance: PERTUZUMAB
     Dosage: 420MG/14ML
     Route: 041
     Dates: start: 20160118, end: 20160118
  8. PERJETA [Suspect]
     Active Substance: PERTUZUMAB
     Dosage: 420MG/14ML
     Route: 041
     Dates: start: 20160208, end: 20160208
  9. NORVASC [Concomitant]
     Active Substance: AMLODIPINE BESYLATE
     Indication: HYPERTENSION
     Route: 048
     Dates: end: 20160212
  10. HERCEPTIN [Suspect]
     Active Substance: TRASTUZUMAB
     Indication: BREAST CANCER
     Route: 041
     Dates: start: 20150819, end: 20160208
  11. PERJETA [Suspect]
     Active Substance: PERTUZUMAB
     Dosage: 420MG/14ML
     Route: 041
     Dates: start: 20151021, end: 20151021
  12. MICARDIS [Concomitant]
     Active Substance: TELMISARTAN
     Indication: HYPERTENSION
     Route: 048
     Dates: end: 20160212
  13. DOCETAXEL. [Concomitant]
     Active Substance: DOCETAXEL
     Indication: BREAST CANCER
     Route: 041
     Dates: start: 20150819, end: 20151111
  14. PERJETA [Suspect]
     Active Substance: PERTUZUMAB
     Dosage: 420MG/14ML
     Route: 041
     Dates: start: 20151202, end: 20151202

REACTIONS (3)
  - Ruptured cerebral aneurysm [Unknown]
  - Haemorrhage intracranial [Recovered/Resolved with Sequelae]
  - Intracranial aneurysm [Unknown]

NARRATIVE: CASE EVENT DATE: 20160212
